FAERS Safety Report 11292571 (Version 2)
Quarter: 2015Q4

REPORT INFORMATION
  Report Type: Spontaneous
  Country: US (occurrence: US)
  Receive Date: 20150722
  Receipt Date: 20151103
  Transmission Date: 20160304
  Serious: Yes (Death, Hospitalization, Other)
  Sender: FDA-Public Use
  Company Number: US-DSJP-DSU-2015-122271

PATIENT

DRUGS (5)
  1. COREG [Concomitant]
     Active Substance: CARVEDILOL
     Indication: BLOOD PRESSURE INCREASED
     Dosage: 6.25 MG, BID
     Dates: start: 200807, end: 201411
  2. NORVASC [Concomitant]
     Active Substance: AMLODIPINE BESYLATE
     Indication: BLOOD PRESSURE INCREASED
     Dosage: 5 MG, QD
     Dates: start: 201005, end: 201006
  3. AVAPRO [Concomitant]
     Active Substance: IRBESARTAN
     Indication: BLOOD PRESSURE INCREASED
     Dosage: 150 MG, QD
     Dates: start: 200504, end: 200912
  4. BENICAR [Suspect]
     Active Substance: OLMESARTAN MEDOXOMIL
     Indication: HYPERTENSION
     Dosage: 40 MG, UNK
     Dates: start: 200909, end: 201304
  5. HYDROCHLOROTHIAZIDE. [Concomitant]
     Active Substance: HYDROCHLOROTHIAZIDE
     Indication: BLOOD PRESSURE INCREASED
     Dosage: 25 MG, QD
     Dates: start: 200912, end: 201001

REACTIONS (15)
  - Malabsorption [Unknown]
  - Cholecystectomy [Unknown]
  - Hiatus hernia [Unknown]
  - Chronic gastritis [Unknown]
  - Oesophageal candidiasis [Unknown]
  - Acute kidney injury [Unknown]
  - Erosive oesophagitis [Unknown]
  - Coeliac disease [Unknown]
  - Gastrointestinal haemorrhage [Unknown]
  - Oesophageal motility disorder [Unknown]
  - Colitis ulcerative [Unknown]
  - Death [Fatal]
  - Colitis [Unknown]
  - Gastrooesophageal reflux disease [Unknown]
  - Gastric polyps [Unknown]

NARRATIVE: CASE EVENT DATE: 2012
